FAERS Safety Report 17763717 (Version 1)
Quarter: 2020Q2

REPORT INFORMATION
  Report Type: Spontaneous
  Country: FR (occurrence: FR)
  Receive Date: 20200510
  Receipt Date: 20200510
  Transmission Date: 20200714
  Serious: Yes (Hospitalization)
  Sender: FDA-Public Use
  Company Number: FR-CADILA HEALTHCARE LIMITED-FR-ZYDUS-034031

PATIENT

DRUGS (34)
  1. ADANCOR [Suspect]
     Active Substance: NICORANDIL
     Indication: PRODUCT USED FOR UNKNOWN INDICATION
     Dosage: 10 MILLIGRAM,10.0MG ONCE/SINGLE ADMINISTRATION,(INTERVAL :1 DAYS)
     Route: 048
     Dates: start: 20170628, end: 20170628
  2. FORLAX [Concomitant]
     Active Substance: POLYETHYLENE GLYCOL 4000
     Dosage: 1 DOSAGE FORM,1 DF, 1X / DAY (MORNING),(INTERVAL :1 DAYS)
     Route: 065
  3. ALDACTONE [Concomitant]
     Active Substance: SPIRONOLACTONE
     Dosage: 2 DOSAGE FORM,2 DF, 1X/DAY,(INTERVAL :1 DAYS)
     Route: 065
  4. ALDACTONE [Concomitant]
     Active Substance: SPIRONOLACTONE
     Dosage: 1 DOSAGE FORM,(INTERVAL :1 DAYS)
     Route: 065
  5. AMLOR [Suspect]
     Active Substance: AMLODIPINE BESYLATE
     Indication: PRODUCT USED FOR UNKNOWN INDICATION
     Dosage: 10 MILLIGRAM,10.0MG ONCE/SINGLE ADMINISTRATION ; IN TOTAL,(INTERVAL :1 TOTAL)
     Route: 048
     Dates: start: 20170628, end: 20170628
  6. ALDACTONE [Concomitant]
     Active Substance: SPIRONOLACTONE
     Dosage: 2 DOSAGE FORM,2 DF, 1X/DAY,(INTERVAL :1 DAYS)
     Route: 065
  7. ESIDREX [Suspect]
     Active Substance: HYDROCHLOROTHIAZIDE
     Indication: PRODUCT USED FOR UNKNOWN INDICATION
     Dosage: 25 MILLIGRAM,25.0MG ONCE/SINGLE ADMINISTRATION ; IN TOTAL,(INTERVAL :1 TOTAL)
     Route: 048
     Dates: start: 20170628, end: 20170628
  8. FORLAX [Concomitant]
     Active Substance: POLYETHYLENE GLYCOL 4000
     Dosage: 1 DOSAGE FORM,1 DF, 1X/DAY (MORNING),(INTERVAL :1 DAYS)
     Route: 065
  9. DUROGESIC [Concomitant]
     Active Substance: FENTANYL
     Dosage: 1 DOSAGE FORM,1 PATCH PER 72 HOURS
     Route: 065
  10. PARACETAMOL [Concomitant]
     Active Substance: ACETAMINOPHEN
     Dosage: 2 DOSAGE FORM,2 DF, 1X/DAY,(INTERVAL :1 DAYS)
     Route: 065
  11. LASILIX [Concomitant]
     Active Substance: FUROSEMIDE
     Dosage: 3 DOSAGE FORM,(INTERVAL :1 DAYS)
     Route: 065
  12. XANAX [Concomitant]
     Active Substance: ALPRAZOLAM
     Dosage: 4 DOSAGE FORM,1 MORNING, 1 NOON, 2 EVENING,(INTERVAL :1 DAYS)
     Route: 065
     Dates: start: 20170628
  13. NAFTIDROFURYL [Concomitant]
     Active Substance: NAFRONYL
     Dosage: 200 MILLIGRAM,200 MG, UNK
     Route: 065
     Dates: start: 20170628
  14. SPIRONOLACTONE. [Suspect]
     Active Substance: SPIRONOLACTONE
     Indication: PRODUCT USED FOR UNKNOWN INDICATION
     Dosage: 1 DOSAGE FORM,(INTERVAL :1 TOTAL)
     Route: 048
     Dates: start: 20170628, end: 20170628
  15. PERINDOPRIL [Suspect]
     Active Substance: PERINDOPRIL
     Indication: PRODUCT USED FOR UNKNOWN INDICATION
     Dosage: 8 MILLIGRAM,8.0MG ONCE/SINGLE ADMINISTRATION,(INTERVAL :1 DAYS)
     Route: 048
     Dates: start: 20170628, end: 20170628
  16. SKENAN [Concomitant]
     Active Substance: MORPHINE SULFATE
     Dosage: 1 DOSAGE FORM,1 DF, 1X/DAY (EVENING),(INTERVAL :1 DAYS)
     Route: 065
  17. ALDACTONE [Concomitant]
     Active Substance: SPIRONOLACTONE
     Dosage: 1 DOSAGE FORM,(INTERVAL :1 DAYS)
     Route: 065
  18. CARDENSIEL [Concomitant]
     Active Substance: BISOPROLOL FUMARATE
     Dosage: 1 DOSAGE FORM,1 DF, 1X/DAY (MORNING),(INTERVAL :1 DAYS)
     Route: 065
  19. AMIODARONE [Suspect]
     Active Substance: AMIODARONE
     Indication: ATRIAL FIBRILLATION
     Dosage: 200 MILLIGRAM,200 MG, 1X/DAY (MORNING),(INTERVAL :1 DAYS)
     Route: 048
     Dates: start: 20170628
  20. ATENOLOL. [Suspect]
     Active Substance: ATENOLOL
     Indication: PRODUCT USED FOR UNKNOWN INDICATION
     Dosage: 10 MILLIGRAM,10 MG, SINGLE,(INTERVAL :1 DAYS)
     Route: 048
     Dates: start: 20170628, end: 20170628
  21. LEVOTHYROX [Concomitant]
     Active Substance: LEVOTHYROXINE
     Dosage: 1 DOSAGE FORM,1 DF, 1X/DAY (MORNING),(INTERVAL :1 DAYS)
     Route: 065
     Dates: start: 20080101
  22. LASILIX [Concomitant]
     Active Substance: FUROSEMIDE
     Dosage: 3 DOSAGE FORM,(INTERVAL :1 DAYS)
     Route: 065
  23. LASILIX [Concomitant]
     Active Substance: FUROSEMIDE
     Dosage: 6 DOSAGE FORM,6 DF, 1X/DAY,(INTERVAL :1 DAYS)
     Route: 065
  24. NAFTIDROFURYL [Concomitant]
     Active Substance: NAFRONYL
     Dosage: 200 MILLIGRAM,200 MG, UNK
     Route: 065
     Dates: start: 20170628
  25. LASILIX [Concomitant]
     Active Substance: FUROSEMIDE
     Dosage: 6 DOSAGE FORM,6 DF, 1X/DAY,(INTERVAL :1 DAYS)
     Route: 065
  26. PARACETAMOL [Concomitant]
     Active Substance: ACETAMINOPHEN
     Dosage: 2 DOSAGE FORM,2 DF, 1X/DAY,(INTERVAL :1 DAYS)
  27. NOVONORM [Suspect]
     Active Substance: REPAGLINIDE
     Indication: PRODUCT USED FOR UNKNOWN INDICATION
     Dosage: 1 MILLIGRAM,1.0MG ONCE / SINGLE ADMINISTRATION; IN TOTAL,(INTERVAL :1 TOTAL)
     Route: 048
     Dates: start: 20170628, end: 20170628
  28. PARACETAMOL [Concomitant]
     Active Substance: ACETAMINOPHEN
     Dosage: 1 DOSAGE FORM,(INTERVAL :1 DAYS)
     Route: 065
  29. XANAX [Concomitant]
     Active Substance: ALPRAZOLAM
     Dosage: 4 DOSAGE FORM,1 MORNING, 1 NOON, 2 EVENING,(INTERVAL :1 DAYS)
     Route: 065
     Dates: start: 20170628
  30. CARDENSIEL [Concomitant]
     Active Substance: BISOPROLOL FUMARATE
     Dosage: 1 DOSAGE FORM,1 DF, 1X/DAY (MORNING),(INTERVAL :1 DAYS)
     Route: 065
  31. LEVOTHYROX [Concomitant]
     Active Substance: LEVOTHYROXINE
     Dosage: 1 DOSAGE FORM,1 DF, 1X/DAY (MORNING),(INTERVAL :1 DAYS)
     Route: 065
     Dates: start: 20080101
  32. PARACETAMOL [Concomitant]
     Active Substance: ACETAMINOPHEN
     Dosage: 1 DOSAGE FORM,(INTERVAL :1 DAYS)
     Route: 065
  33. SKENAN [Concomitant]
     Active Substance: MORPHINE SULFATE
     Dosage: 1 DOSAGE FORM,1 DF, 1X/DAY (EVENING),(INTERVAL :1 DAYS)
     Route: 065
  34. DUROGESIC [Concomitant]
     Active Substance: FENTANYL
     Dosage: 1 DOSAGE FORM,1 PATCH PER 72 HOURS
     Route: 065

REACTIONS (6)
  - Coma scale abnormal [Unknown]
  - Wrong patient received product [Unknown]
  - Hypoglycaemia [Recovered/Resolved]
  - Hypotension [Recovered/Resolved]
  - Bradycardia [Recovered/Resolved]
  - Acute kidney injury [Recovered/Resolved]

NARRATIVE: CASE EVENT DATE: 20170628
